FAERS Safety Report 9493885 (Version 1)
Quarter: 2013Q3

REPORT INFORMATION
  Report Type: Spontaneous
  Country: US (occurrence: US)
  Receive Date: 20130903
  Receipt Date: 20130903
  Transmission Date: 20140515
  Serious: Yes (Death)
  Sender: FDA-Public Use
  Company Number: US-PFIZER INC-2013251927

PATIENT
  Age: 62 Year
  Sex: Male

DRUGS (1)
  1. INLYTA [Suspect]
     Dosage: 7 MG (ONE 5MG + TWO 1MG TABLETS), 2X/DAY
     Route: 048
     Dates: start: 20130628

REACTIONS (1)
  - Death [Fatal]
